FAERS Safety Report 25050000 (Version 2)
Quarter: 2025Q2

REPORT INFORMATION
  Report Type: Spontaneous
  Country: FR (occurrence: FR)
  Receive Date: 20250307
  Receipt Date: 20250612
  Transmission Date: 20250716
  Serious: Yes (Other)
  Sender: REGENERON
  Company Number: FR-BAYER-2025A030552

PATIENT
  Age: 64 Year
  Sex: Female

DRUGS (3)
  1. EYLEA [Suspect]
     Active Substance: AFLIBERCEPT
     Indication: Product used for unknown indication
     Dosage: 2 MG, Q4WK; 40MG/ML
  2. EYLEA HD [Suspect]
     Active Substance: AFLIBERCEPT
     Indication: Product used for unknown indication
     Route: 031
     Dates: start: 20250107, end: 20250107
  3. EYLEA HD [Suspect]
     Active Substance: AFLIBERCEPT
     Route: 031
     Dates: start: 20250219

REACTIONS (3)
  - Subretinal fluid [Unknown]
  - Vitritis [Unknown]
  - Visual acuity reduced [Unknown]

NARRATIVE: CASE EVENT DATE: 20250221
